FAERS Safety Report 9357668 (Version 2)
Quarter: 2013Q2

REPORT INFORMATION
  Report Type: Spontaneous
  Country: CO (occurrence: CO)
  Receive Date: 20130620
  Receipt Date: 20130626
  Transmission Date: 20140414
  Serious: Yes (Other)
  Sender: FDA-Public Use
  Company Number: CO-PFIZER INC-2013182357

PATIENT
  Age: 10 Year
  Sex: Female

DRUGS (1)
  1. GENOTROPIN [Suspect]
     Indication: BODY HEIGHT BELOW NORMAL
     Dosage: 1.5 MG, 1X/DAY
     Route: 058
     Dates: start: 2010

REACTIONS (4)
  - Hearing impaired [Unknown]
  - Tonsillar disorder [Unknown]
  - Pharyngeal disorder [Unknown]
  - Off label use [Unknown]
